FAERS Safety Report 24242198 (Version 5)
Quarter: 2024Q4

REPORT INFORMATION
  Report Type: Report from Study
  Country: ZA (occurrence: ZA)
  Receive Date: 20240823
  Receipt Date: 20241113
  Transmission Date: 20250114
  Serious: Yes (Other)
  Sender: NOVARTIS
  Company Number: ZA-002147023-NVSC2024ZA167777

PATIENT
  Age: 59 Year
  Sex: Female

DRUGS (2)
  1. COSENTYX [Suspect]
     Active Substance: SECUKINUMAB
     Indication: Psoriatic arthropathy
     Dosage: 150 MG, QMO
     Route: 058
     Dates: start: 20240621
  2. COSENTYX [Suspect]
     Active Substance: SECUKINUMAB
     Dosage: 150 MG, QMO
     Route: 058
     Dates: end: 202409

REACTIONS (22)
  - Swelling [Unknown]
  - Malaise [Unknown]
  - Irritable bowel syndrome [Unknown]
  - Flatulence [Unknown]
  - Abdominal distension [Unknown]
  - Constipation [Unknown]
  - Abdominal pain upper [Unknown]
  - Swelling face [Unknown]
  - Oropharyngeal pain [Unknown]
  - Influenza [Unknown]
  - Vision blurred [Unknown]
  - Lacrimation increased [Unknown]
  - Nasal congestion [Unknown]
  - Rhinalgia [Unknown]
  - Productive cough [Unknown]
  - Throat irritation [Unknown]
  - Skin burning sensation [Unknown]
  - Feeling abnormal [Unknown]
  - Dysphagia [Unknown]
  - Dyspnoea [Unknown]
  - Erythema [Unknown]
  - Adverse drug reaction [Unknown]
